FAERS Safety Report 10250191 (Version 4)
Quarter: 2014Q3

REPORT INFORMATION
  Report Type: Report from Study
  Country: US (occurrence: US)
  Receive Date: 20140620
  Receipt Date: 20140822
  Transmission Date: 20150326
  Serious: Yes (Hospitalization, Other)
  Sender: FDA-Public Use
  Company Number: US-ALEXION-A201305280

PATIENT

DRUGS (2)
  1. SOLIRIS [Suspect]
     Active Substance: ECULIZUMAB
     Indication: HAEMOLYTIC URAEMIC SYNDROME
     Dosage: 900 MG, QW
     Route: 042
     Dates: start: 20130912
  2. SOLIRIS [Suspect]
     Active Substance: ECULIZUMAB
     Dosage: 900 MG, Q2W
     Route: 042

REACTIONS (6)
  - Posterior reversible encephalopathy syndrome [Unknown]
  - Convulsion [Unknown]
  - Candida infection [Recovered/Resolved]
  - Hypoxia [Unknown]
  - Device related infection [Unknown]
  - Aspiration [Unknown]

NARRATIVE: CASE EVENT DATE: 20130915
